FAERS Safety Report 7745879-0 (Version None)
Quarter: 2011Q3

REPORT INFORMATION
  Report Type: 
  Country: None (occurrence: None)
  Receive Date: 20110913
  Receipt Date: 20110901
  Transmission Date: 20111222
  Serious: Yes (Hospitalization)
  Sender: FDA-Public Use
  Company Number: JP-UCBSA-039315

PATIENT
  Sex: Female

DRUGS (9)
  1. CERTOLIZUMAB PEGOL [Suspect]
     Indication: RHEUMATOID ARTHRITIS
     Dosage: 10/NOV/2009-UNKNOWN:400MG/2 WEEKS;UNKNOWN-200MG/2 WEEKS. 25/MAY/2010-22/APR/2011;400MG/4 WEEKS
     Route: 058
     Dates: start: 20110520, end: 20110802
  2. FAMOTIDINE [Concomitant]
     Dosage: TOTAL DAILY DOSE : 40 MG
     Dates: start: 20110822
  3. CELECOXIB [Concomitant]
     Dosage: TOTAL DAILY DOSE : 400 MG
     Dates: start: 20101108
  4. KETOPROFEN [Concomitant]
     Dosage: ADEQUATE DOSE, PRN.
     Dates: start: 20101014
  5. ACTARIT [Concomitant]
     Dosage: TOTAL DAILY DOSE : 300 MG
  6. NILVADIPINE [Concomitant]
     Dosage: TOTAL DAILY DOSE : 4 MG
     Dates: start: 20100803
  7. BUCILLAMINE [Concomitant]
     Dosage: TOTAL DAILY DOSE : 200 MG
     Dates: start: 20110723
  8. FAMOTIDINE [Concomitant]
     Dosage: TOTAL DAILY DOSE: 40 MG
     Dates: start: 20100401
  9. VALSARTAN [Concomitant]
     Dosage: TOTAL DAILY DOSE: 80 MG
     Dates: start: 20021126

REACTIONS (1)
  - STAPHYLOCOCCAL SEPSIS [None]
